FAERS Safety Report 9057291 (Version 1)
Quarter: 2013Q1

REPORT INFORMATION
  Report Type: Report from Study
  Country: JP (occurrence: JP)
  Receive Date: 20130131
  Receipt Date: 20130131
  Transmission Date: 20140127
  Serious: Yes (Other)
  Sender: FDA-Public Use
  Company Number: JP-GLAXOSMITHKLINE-B0860833A

PATIENT
  Age: 68 None
  Sex: Female
  Weight: 55 kg

DRUGS (3)
  1. TYKERB [Suspect]
     Indication: BREAST CANCER
     Route: 048
     Dates: start: 20110114, end: 20110520
  2. XELODA [Suspect]
     Route: 048
     Dates: start: 20110114, end: 20110520
  3. ZOMETA [Concomitant]
     Indication: METASTASES TO BONE
     Route: 042
     Dates: start: 20110114, end: 20110520

REACTIONS (1)
  - Metastases to central nervous system [Not Recovered/Not Resolved]
